FAERS Safety Report 4280847-5 (Version None)
Quarter: 2004Q1

REPORT INFORMATION
  Report Type: 
  Country: None (occurrence: None)
  Receive Date: 20040127
  Receipt Date: 20040119
  Transmission Date: 20041129
  Serious: Yes (Other)
  Sender: FDA-Public Use
  Company Number: HQWYE480620JAN04

PATIENT
  Sex: Male

DRUGS (4)
  1. EFFEXOR [Suspect]
     Dosage: 150 MG 1X PER 1 DAY
     Route: 048
     Dates: start: 20031201
  2. RISPERDAL [Suspect]
     Dosage: SEE IMAGE
     Route: 048
     Dates: end: 20031201
  3. RISPERDAL [Suspect]
     Dosage: SEE IMAGE
     Route: 048
     Dates: start: 20031201
  4. ZOLOFT [Suspect]
     Dosage: 100 MG IN THE MORNING AND 50 MG MID-DAY
     Dates: end: 20031201

REACTIONS (5)
  - AGGRESSION [None]
  - ANGER [None]
  - ELEVATED MOOD [None]
  - HOMICIDAL IDEATION [None]
  - LEGAL PROBLEM [None]
